FAERS Safety Report 18731996 (Version 3)
Quarter: 2021Q1

REPORT INFORMATION
  Report Type: Spontaneous
  Country: US (occurrence: US)
  Receive Date: 20210112
  Receipt Date: 20210319
  Transmission Date: 20210419
  Serious: Yes (Hospitalization, Congenital Anomaly, Other)
  Sender: FDA-Public Use
  Company Number: NVSC2021US005781

PATIENT
  Sex: Male

DRUGS (2)
  1. ZOFRAN ODT [Suspect]
     Active Substance: ONDANSETRON HYDROCHLORIDE
     Indication: FOETAL EXPOSURE DURING PREGNANCY
     Route: 064
  2. ZOFRAN [Suspect]
     Active Substance: ONDANSETRON HYDROCHLORIDE
     Indication: FOETAL EXPOSURE DURING PREGNANCY
     Route: 064

REACTIONS (36)
  - Pneumonia [Unknown]
  - Haemorrhagic disorder [Unknown]
  - Deformity [Unknown]
  - Lymphadenopathy [Unknown]
  - Speech disorder [Unknown]
  - Language disorder [Unknown]
  - Wheezing [Unknown]
  - Hydrocele [Unknown]
  - Incarcerated inguinal hernia [Unknown]
  - Injury [Unknown]
  - Pyrexia [Unknown]
  - Gastrooesophageal reflux disease [Unknown]
  - Vomiting [Unknown]
  - Congenital anomaly [Unknown]
  - Cryptorchism [Unknown]
  - Dysmorphism [Unknown]
  - Gross motor delay [Unknown]
  - Emotional distress [Unknown]
  - Anhedonia [Unknown]
  - Cleft palate [Unknown]
  - Foetal exposure during pregnancy [Unknown]
  - Cough [Unknown]
  - Otitis media [Unknown]
  - Anisocytosis [Unknown]
  - Middle ear effusion [Unknown]
  - Pyelocaliectasis [Unknown]
  - Developmental delay [Unknown]
  - Swelling [Unknown]
  - Polychromasia [Unknown]
  - Communication disorder [Unknown]
  - Bronchiolitis [Unknown]
  - Pain [Unknown]
  - Rhinitis allergic [Unknown]
  - Ear infection [Unknown]
  - Asthma [Unknown]
  - Inguinal mass [Unknown]
